FAERS Safety Report 9433729 (Version 1)
Quarter: 2013Q3

REPORT INFORMATION
  Report Type: Spontaneous
  Country: US (occurrence: US)
  Receive Date: 20130731
  Receipt Date: 20130731
  Transmission Date: 20140515
  Serious: Yes (Hospitalization, Other)
  Sender: FDA-Public Use
  Company Number: US-RB-056607-13

PATIENT
  Age: 38 Year
  Sex: Female

DRUGS (4)
  1. SUBOXONE FILM [Suspect]
     Indication: DRUG DEPENDENCE
     Dosage: SUBOXONE FILM
     Route: 060
     Dates: start: 20130618, end: 20130618
  2. XANAX [Suspect]
     Indication: DRUG DEPENDENCE
     Dosage: TOOK 12-14 MG ONCE
     Route: 048
     Dates: start: 20130618, end: 20130618
  3. OXYCONTIN [Suspect]
     Indication: DRUG DEPENDENCE
     Dosage: ^TOOK 37 THIRTIES^, TIME PERIOD UNKNOWN
     Route: 065
  4. METHADONE [Suspect]
     Indication: DRUG DEPENDENCE
     Route: 048
     Dates: start: 2012, end: 201306

REACTIONS (8)
  - Respiratory arrest [Recovered/Resolved]
  - Substance abuse [Recovered/Resolved]
  - Wrong technique in drug usage process [Recovered/Resolved]
  - Drug withdrawal syndrome [Recovered/Resolved]
  - Drug abuse [Recovered/Resolved]
  - Joint injury [Recovered/Resolved]
  - Musculoskeletal pain [Not Recovered/Not Resolved]
  - Hypoaesthesia oral [Not Recovered/Not Resolved]
